FAERS Safety Report 10010199 (Version 2)
Quarter: 2014Q1

REPORT INFORMATION
  Report Type: Spontaneous
  Country: None (occurrence: US)
  Receive Date: 20140312
  Receipt Date: 20140312
  Transmission Date: 20141002
  Serious: No
  Sender: FDA-Public Use
  Company Number: US-INCYTE CORPORATION-2013IN001470

PATIENT
  Age: 82 Year
  Sex: Female

DRUGS (1)
  1. JAKAFI [Suspect]
     Dosage: 20 MG, BID
     Route: 048
     Dates: start: 201212

REACTIONS (5)
  - Breast disorder female [Unknown]
  - Paraesthesia [Unknown]
  - Abdominal distension [Unknown]
  - Abdominal pain [Unknown]
  - Weight increased [Unknown]
